FAERS Safety Report 21141773 (Version 1)
Quarter: 2022Q3

REPORT INFORMATION
  Report Type: Report from Study
  Country: US (occurrence: US)
  Receive Date: 20220728
  Receipt Date: 20220728
  Transmission Date: 20221026
  Serious: Yes (Other)
  Sender: FDA-Public Use
  Company Number: US-BRISTOL-MYERS SQUIBB COMPANY-2022-077756

PATIENT
  Age: 73 Year
  Sex: Male
  Weight: 84.1 kg

DRUGS (1)
  1. REVLIMID [Suspect]
     Active Substance: LENALIDOMIDE
     Indication: Plasma cell myeloma
     Route: 048
     Dates: start: 20220409

REACTIONS (4)
  - Fatigue [Unknown]
  - Marginal zone lymphoma [Unknown]
  - Myasthenia gravis [Unknown]
  - Xanthogranuloma [Unknown]
